FAERS Safety Report 7301122-8 (Version None)
Quarter: 2011Q1

REPORT INFORMATION
  Report Type: 
  Country: None (occurrence: None)
  Receive Date: 20110218
  Receipt Date: 20110207
  Transmission Date: 20110831
  Serious: Yes (Life-Threatening, Hospitalization)
  Sender: FDA-Public Use
  Company Number: DE-AMGEN-US209051

PATIENT
  Age: 65 Year
  Sex: Female

DRUGS (6)
  1. ETANERCEPT [Suspect]
     Dosage: 25 MG, 2 TIMES/WK
     Dates: start: 20060201
  2. PREDNISOLON                        /00016201/ [Concomitant]
     Dosage: 2 MG, QD
     Dates: end: 20060101
  3. ETANERCEPT [Suspect]
     Indication: RHEUMATOID ARTHRITIS
     Dosage: 25 MG, 2 TIMES/WK
     Route: 058
     Dates: start: 20031001, end: 20060101
  4. LANTAREL [Concomitant]
     Dosage: 10 MG, QWK
     Dates: start: 20040101
  5. LANTAREL [Concomitant]
     Dosage: 20 MG, UNK
     Dates: start: 20000101, end: 20040101
  6. NOVALGIN                           /06276704/ [Concomitant]
     Dosage: ON DEMAND

REACTIONS (1)
  - BREAST CANCER [None]
